FAERS Safety Report 5527835-6 (Version None)
Quarter: 2007Q4

REPORT INFORMATION
  Report Type: 
  Country: None (occurrence: None)
  Receive Date: 20071128
  Receipt Date: 20071122
  Transmission Date: 20080405
  Serious: Yes (Hospitalization)
  Sender: FDA-Public Use
  Company Number: B0497392A

PATIENT
  Age: 27 Month
  Sex: Male
  Weight: 12 kg

DRUGS (1)
  1. AUGMENTIN '125' [Suspect]
     Dosage: 4ML SINGLE DOSE
     Route: 048
     Dates: start: 20071111, end: 20071111

REACTIONS (2)
  - OEDEMA PERIPHERAL [None]
  - WRONG DRUG ADMINISTERED [None]
